FAERS Safety Report 9325845 (Version 1)
Quarter: 2013Q2

REPORT INFORMATION
  Report Type: Spontaneous
  Country: AU (occurrence: AU)
  Receive Date: 20130604
  Receipt Date: 20130604
  Transmission Date: 20140414
  Serious: Yes (Other)
  Sender: FDA-Public Use
  Company Number: AU-JNJFOC-20130515993

PATIENT
  Age: 74 Year
  Sex: Male
  Weight: 87 kg

DRUGS (3)
  1. DUROGESIC [Suspect]
     Indication: ARTHRALGIA
     Route: 062
     Dates: end: 20130506
  2. DUROGESIC [Suspect]
     Indication: ARTHRALGIA
     Route: 062
  3. DUROGESIC [Suspect]
     Indication: ARTHRALGIA
     Route: 062
     Dates: start: 20130325

REACTIONS (2)
  - Restless legs syndrome [Recovered/Resolved]
  - Muscle spasms [Recovered/Resolved]
